FAERS Safety Report 19382106 (Version 1)
Quarter: 2021Q2

REPORT INFORMATION
  Report Type: Spontaneous
  Country: PL (occurrence: PL)
  Receive Date: 20210607
  Receipt Date: 20210607
  Transmission Date: 20210717
  Serious: Yes (Other)
  Sender: FDA-Public Use
  Company Number: PL-PURDUE-USA-2021-0268307

PATIENT
  Sex: Male

DRUGS (1)
  1. OXYCONTIN [Suspect]
     Active Substance: OXYCODONE HYDROCHLORIDE
     Indication: ANKYLOSING SPONDYLITIS
     Dosage: PATIENT APPLIED 10?20 MILLIGRAM IN THE MORNING AND IN THE EVENING
     Route: 048

REACTIONS (13)
  - Libido decreased [Unknown]
  - Pain [Unknown]
  - Depressed mood [Unknown]
  - Diarrhoea [Unknown]
  - Confusional state [Unknown]
  - Chills [Unknown]
  - Euphoric mood [Unknown]
  - Drug dependence [Unknown]
  - Memory impairment [Unknown]
  - Constipation [Unknown]
  - Rhinorrhoea [Unknown]
  - Malaise [Unknown]
  - Feeling of body temperature change [Unknown]
